FAERS Safety Report 20849094 (Version 4)
Quarter: 2022Q4

REPORT INFORMATION
  Report Type: Spontaneous
  Country: JP (occurrence: JP)
  Receive Date: 20220519
  Receipt Date: 20221102
  Transmission Date: 20230112
  Serious: Yes (Hospitalization, Other)
  Sender: FDA-Public Use
  Company Number: JP-ONO-2022JP008511

PATIENT
  Age: 80 Year
  Sex: Male
  Weight: 38.8 kg

DRUGS (16)
  1. YERVOY [Suspect]
     Active Substance: IPILIMUMAB
     Indication: Pleural mesothelioma malignant
     Dosage: 45 MG
     Route: 041
     Dates: start: 20211020, end: 20211202
  2. YERVOY [Suspect]
     Active Substance: IPILIMUMAB
  3. YERVOY [Suspect]
     Active Substance: IPILIMUMAB
  4. OPDIVO [Suspect]
     Active Substance: NIVOLUMAB
     Indication: Pleural mesothelioma malignant
     Route: 041
     Dates: start: 20211020, end: 20211202
  5. HERBALS [Concomitant]
     Active Substance: HERBALS
     Indication: Product used for unknown indication
     Dosage: UNK
     Route: 065
     Dates: end: 20211213
  6. CALONAL [Concomitant]
     Active Substance: ACETAMINOPHEN
     Indication: Product used for unknown indication
     Dosage: UNK
     Route: 065
  7. MAGNESIUM OXIDE [Concomitant]
     Active Substance: MAGNESIUM OXIDE
     Indication: Product used for unknown indication
     Dosage: UNK
     Route: 065
     Dates: end: 20211205
  8. EURAX [Concomitant]
     Active Substance: CROTAMITON
     Indication: Product used for unknown indication
     Dosage: UNK
     Route: 065
  9. HEPARINOID [Concomitant]
     Indication: Product used for unknown indication
     Dosage: UNK
     Route: 061
  10. CELECOXIB [Concomitant]
     Active Substance: CELECOXIB
     Indication: Product used for unknown indication
     Dosage: UNK
     Route: 065
  11. CELECOXIB [Concomitant]
     Active Substance: CELECOXIB
     Route: 065
  12. Glycopyrronium Bromide Formoterol Fumarate Hydrate [Concomitant]
     Indication: Product used for unknown indication
     Route: 065
  13. MOSAPRIDE [Concomitant]
     Active Substance: MOSAPRIDE
     Indication: Product used for unknown indication
     Route: 065
  14. ACETAMINOPHEN [Concomitant]
     Active Substance: ACETAMINOPHEN
     Indication: Product used for unknown indication
     Route: 065
  15. CROTAMITON [Concomitant]
     Active Substance: CROTAMITON
     Indication: Product used for unknown indication
     Route: 065
  16. LEVOCETIRIZINE [Concomitant]
     Active Substance: LEVOCETIRIZINE
     Indication: Product used for unknown indication
     Route: 065

REACTIONS (2)
  - Colitis ulcerative [Recovering/Resolving]
  - Hepatic function abnormal [Recovering/Resolving]

NARRATIVE: CASE EVENT DATE: 20211213
